FAERS Safety Report 25473478 (Version 1)
Quarter: 2025Q2

REPORT INFORMATION
  Report Type: Spontaneous
  Country: US (occurrence: None)
  Receive Date: 20250624
  Receipt Date: 20250624
  Transmission Date: 20250716
  Serious: Yes (Other)
  Sender: FDA-CTU
  Company Number: None

PATIENT
  Age: 57 Year
  Sex: Male
  Weight: 96.3 kg

DRUGS (1)
  1. TRUXIMA [Suspect]
     Active Substance: RITUXIMAB-ABBS
     Indication: Rheumatoid arthritis
     Route: 042
     Dates: start: 20241126, end: 20250610

REACTIONS (7)
  - Infusion related reaction [None]
  - Pain [None]
  - Oropharyngeal pain [None]
  - Swollen tongue [None]
  - Pharyngeal swelling [None]
  - Nonspecific reaction [None]
  - Hypertension [None]

NARRATIVE: CASE EVENT DATE: 20250612
